FAERS Safety Report 4367412-6 (Version None)
Quarter: 2004Q2

REPORT INFORMATION
  Report Type: 
  Country: None (occurrence: None)
  Receive Date: 20040528
  Receipt Date: 20040528
  Transmission Date: 20050107
  Serious: Yes (Life-Threatening)
  Sender: FDA-Public Use
  Company Number: None

PATIENT
  Age: 37 Year
  Sex: Female
  Weight: 86.1834 kg

DRUGS (2)
  1. WELLBUTRIN XL [Suspect]
     Indication: DEPRESSION
     Dosage: 150 MG DAILY ORAL
     Route: 048
     Dates: start: 20040430, end: 20040521
  2. WELLBUTRIN XL [Suspect]
     Indication: WEIGHT DECREASED
     Dosage: 150 MG DAILY ORAL
     Route: 048
     Dates: start: 20040430, end: 20040521

REACTIONS (6)
  - CONJUNCTIVITIS [None]
  - ERYTHEMA MULTIFORME [None]
  - MYALGIA [None]
  - PHARYNGOLARYNGEAL PAIN [None]
  - PYREXIA [None]
  - RHINORRHOEA [None]
